FAERS Safety Report 25442107 (Version 1)
Quarter: 2025Q2

REPORT INFORMATION
  Report Type: Spontaneous
  Country: FR (occurrence: FR)
  Receive Date: 20250616
  Receipt Date: 20250616
  Transmission Date: 20250716
  Serious: Yes (Hospitalization)
  Sender: ELI LILLY AND COMPANY
  Company Number: FR-ELI_LILLY_AND_COMPANY-FR202506011029

PATIENT
  Age: 59 Year
  Sex: Male

DRUGS (2)
  1. GEMCITABINE HYDROCHLORIDE [Suspect]
     Active Substance: GEMCITABINE HYDROCHLORIDE
     Indication: Bronchial carcinoma
     Route: 041
     Dates: start: 20250131, end: 20250131
  2. TAMSULOSIN [Suspect]
     Active Substance: TAMSULOSIN
     Indication: Benign prostatic hyperplasia
     Dosage: 0.4 MG, DAILY
     Route: 048
     Dates: start: 20250117, end: 20250212

REACTIONS (8)
  - General physical health deterioration [Unknown]
  - Toxicity to various agents [Unknown]
  - Rash maculo-papular [Recovering/Resolving]
  - Drug eruption [Unknown]
  - General physical condition abnormal [Unknown]
  - Bloody discharge [Unknown]
  - Pain [Not Recovered/Not Resolved]
  - Asthenia [Unknown]

NARRATIVE: CASE EVENT DATE: 20250204
